FAERS Safety Report 21985018 (Version 1)
Quarter: 2023Q1

REPORT INFORMATION
  Report Type: Spontaneous
  Country: US (occurrence: None)
  Receive Date: 20230210
  Receipt Date: 20230210
  Transmission Date: 20230417
  Serious: Yes (Life-Threatening, Hospitalization, Disabling)
  Sender: FDA-Public Use
  Company Number: None

PATIENT
  Age: 65 Year
  Sex: Female
  Weight: 74.25 kg

DRUGS (5)
  1. MIDAZOLAM [Suspect]
     Active Substance: MIDAZOLAM
     Dates: start: 20221207, end: 20221207
  2. LOSARTAN [Concomitant]
     Active Substance: LOSARTAN
  3. OXYCODONE [Concomitant]
     Active Substance: OXYCODONE
  4. CHONDROITIN SULFATE A\GLUCOSAMINE [Concomitant]
     Active Substance: CHONDROITIN SULFATE A\GLUCOSAMINE
  5. CALCIUM [Concomitant]

REACTIONS (2)
  - Product administration error [None]
  - Respiratory arrest [None]

NARRATIVE: CASE EVENT DATE: 20221207
